FAERS Safety Report 8152521-6 (Version None)
Quarter: 2012Q1

REPORT INFORMATION
  Report Type: 
  Country: None (occurrence: None)
  Receive Date: 20120215
  Receipt Date: 20120203
  Transmission Date: 20120608
  Serious: Yes (Death, Hospitalization, Other)
  Sender: FDA-Public Use
  Company Number: 2008AL010736

PATIENT
  Sex: Female

DRUGS (21)
  1. ADVAIR DISKUS 100/50 [Concomitant]
  2. NORVASC [Concomitant]
  3. DIGOXIN [Suspect]
     Dosage: 125 MCG; QD; PO
     Route: 048
     Dates: start: 20060109, end: 20080328
  4. ALLOPURINOL [Concomitant]
  5. METOLAZONE [Concomitant]
  6. NIFEDIPINE [Concomitant]
  7. TAMOXIFEN CITRATE [Concomitant]
  8. SPIRIVA [Concomitant]
  9. PRANDIN [Concomitant]
  10. PROTONIX [Concomitant]
  11. AMBIEN [Concomitant]
  12. GEMFIBROZIL [Concomitant]
  13. LANTUS [Concomitant]
  14. LEVOXYL [Concomitant]
  15. PLETAL [Concomitant]
  16. FUROSEMIDE [Concomitant]
  17. TOPROL-XL [Concomitant]
  18. WARFARIN SODIUM [Concomitant]
  19. ALDACTONE [Concomitant]
  20. COLCHICINE [Concomitant]
  21. POTASSIUM CHLORIDE [Concomitant]

REACTIONS (63)
  - POLYURIA [None]
  - VISUAL ACUITY REDUCED [None]
  - ASTHENIA [None]
  - PAIN IN EXTREMITY [None]
  - ATRIAL FIBRILLATION [None]
  - LEFT VENTRICULAR HYPERTROPHY [None]
  - HAEMOGLOBIN DECREASED [None]
  - ACTIVATED PARTIAL THROMBOPLASTIN TIME PROLONGED [None]
  - MITRAL VALVE INCOMPETENCE [None]
  - TRICUSPID VALVE INCOMPETENCE [None]
  - PALPITATIONS [None]
  - TACHYCARDIA [None]
  - MUSCULAR WEAKNESS [None]
  - VENTRICULAR TACHYCARDIA [None]
  - HIATUS HERNIA [None]
  - BUNDLE BRANCH BLOCK LEFT [None]
  - FAMILY STRESS [None]
  - CONSTIPATION [None]
  - ARTERIOSCLEROSIS CORONARY ARTERY [None]
  - CHEST PAIN [None]
  - HAEMATOCRIT DECREASED [None]
  - GASTRITIS [None]
  - BLOOD UREA INCREASED [None]
  - BLOOD CHLORIDE DECREASED [None]
  - PAIN [None]
  - ANXIETY [None]
  - FEAR [None]
  - EMOTIONAL DISORDER [None]
  - HYPERLIPIDAEMIA [None]
  - GASTROINTESTINAL HAEMORRHAGE [None]
  - HYPOTHYROIDISM [None]
  - DIZZINESS [None]
  - LOSS OF CONSCIOUSNESS [None]
  - PRESYNCOPE [None]
  - RESPIRATORY TRACT CONGESTION [None]
  - ECONOMIC PROBLEM [None]
  - FATIGUE [None]
  - OEDEMA PERIPHERAL [None]
  - ACUTE MYOCARDIAL INFARCTION [None]
  - QRS AXIS ABNORMAL [None]
  - ELECTROCARDIOGRAM QRS COMPLEX PROLONGED [None]
  - DIABETES MELLITUS INADEQUATE CONTROL [None]
  - CARDIAC FAILURE CONGESTIVE [None]
  - MYOCARDIAL ISCHAEMIA [None]
  - ELECTROCARDIOGRAM T WAVE ABNORMAL [None]
  - BLOOD SODIUM DECREASED [None]
  - VENTRICULAR EXTRASYSTOLES [None]
  - WHITE BLOOD CELL COUNT INCREASED [None]
  - ANHEDONIA [None]
  - HYPERTENSION [None]
  - WEIGHT LOSS POOR [None]
  - ARTHRALGIA [None]
  - INTERNATIONAL NORMALISED RATIO INCREASED [None]
  - BUNDLE BRANCH BLOCK RIGHT [None]
  - BLOOD POTASSIUM DECREASED [None]
  - RALES [None]
  - INJURY [None]
  - SYNCOPE [None]
  - GOUT [None]
  - ATELECTASIS [None]
  - ACQUIRED DIAPHRAGMATIC EVENTRATION [None]
  - MITRAL VALVE CALCIFICATION [None]
  - BLOOD CREATININE INCREASED [None]
